FAERS Safety Report 20135704 (Version 1)
Quarter: 2021Q4

REPORT INFORMATION
  Report Type: Spontaneous
  Country: AR (occurrence: AR)
  Receive Date: 20211201
  Receipt Date: 20211201
  Transmission Date: 20220303
  Serious: Yes (Hospitalization)
  Sender: FDA-Public Use
  Company Number: AR-NOVARTISPH-NVSC2021AR271848

PATIENT
  Sex: Female

DRUGS (3)
  1. EXFORGE HCT [Suspect]
     Active Substance: AMLODIPINE BESYLATE\HYDROCHLOROTHIAZIDE\VALSARTAN
     Indication: Hypertension
     Dosage: 1 DOSAGE FORM, QD, (5: HYDROCHLORTHIAZIDE,160:AMLODIPINE,12.5: VALSARTAN) STARTED ABOUT 5 YEARS AGO
     Route: 065
  2. EXFORGE HCT [Suspect]
     Active Substance: AMLODIPINE BESYLATE\HYDROCHLOROTHIAZIDE\VALSARTAN
     Dosage: 1 DOSAGE FORM, QD, (5: HYDROCHLORTHIAZIDE,160:AMLODIPINE,12.5: VALSARTAN)
     Route: 065
  3. EXFORGE HCT [Suspect]
     Active Substance: AMLODIPINE BESYLATE\HYDROCHLOROTHIAZIDE\VALSARTAN
     Dosage: 1 DOSAGE FORM, QD, (5: HYDROCHLORTHIAZIDE,160:AMLODIPINE,12.5: VALSARTAN)
     Route: 065

REACTIONS (4)
  - COVID-19 [Unknown]
  - Fall [Unknown]
  - Arthropathy [Unknown]
  - Coma [Unknown]
